FAERS Safety Report 25282902 (Version 1)
Quarter: 2025Q2

REPORT INFORMATION
  Report Type: Spontaneous
  Country: CN (occurrence: CN)
  Receive Date: 20250508
  Receipt Date: 20250508
  Transmission Date: 20250716
  Serious: Yes (Hospitalization)
  Sender: INCYTE
  Company Number: CN-INNOVENT BIOLOGICS-INN2025003612

PATIENT
  Age: 61 Year
  Weight: 59.4 kg

DRUGS (2)
  1. PEMAZYRE [Suspect]
     Active Substance: PEMIGATINIB
     Indication: Malignant neoplasm of renal pelvis
     Dosage: 9 MG, QD
  2. PADCEV [Suspect]
     Active Substance: ENFORTUMAB VEDOTIN-EJFV
     Indication: Malignant neoplasm of renal pelvis
     Dosage: 60 MG, QW

REACTIONS (1)
  - Drug eruption [Recovering/Resolving]
